FAERS Safety Report 5867383-7 (Version None)
Quarter: 2008Q3

REPORT INFORMATION
  Report Type: 
  Country: None (occurrence: None)
  Receive Date: 20080902
  Receipt Date: 20080825
  Transmission Date: 20090109
  Serious: Yes (Other)
  Sender: FDA-Public Use
  Company Number: PHHY2008DE19064

PATIENT
  Sex: Female

DRUGS (14)
  1. ZOMETA [Suspect]
     Indication: METASTASES TO BONE
     Dosage: 4 MG EVERY 4 WEEKS
     Route: 042
     Dates: start: 20080226
  2. INSUMAN BASAL [Concomitant]
     Indication: TYPE 1 DIABETES MELLITUS
     Dosage: 23 IE DAILY
  3. INSUMAN RAPID [Concomitant]
     Indication: TYPE 1 DIABETES MELLITUS
  4. ATACAND [Concomitant]
     Indication: BLOOD PRESSURE
  5. AMLODIPINE [Concomitant]
     Indication: BLOOD PRESSURE
  6. IBUPROFEN TABLETS [Concomitant]
     Indication: PAIN
     Dosage: 600 MG PRN
  7. PALLADON [Concomitant]
  8. CALCIUM [Concomitant]
     Dosage: 600 MG
  9. EMEND [Concomitant]
     Indication: NAUSEA
     Dosage: 125 MG ONCE AT THE START OF CHEMOTHERAPY
  10. EMEND [Concomitant]
     Dosage: 80 MG AT THE FIRST AND SECOND DAY AFTER CHEMOTHERAPY
  11. GRANISETRON HCL [Concomitant]
     Dosage: 2 MG AFTER CHEMOTHERAPY
  12. METOCLOPRAMIDE [Concomitant]
     Indication: NAUSEA
     Dosage: 30 DRP, TID
  13. DIGIMERCK [Concomitant]
     Dosage: 0.1 DAILY
  14. FUROSEMID [Concomitant]
     Indication: DEHYDRATION
     Dosage: 40, HALF TABLET DAILY

REACTIONS (4)
  - ATRIAL FIBRILLATION [None]
  - CARDIAC FAILURE [None]
  - HYPOCALCAEMIA [None]
  - TACHYARRHYTHMIA [None]
